FAERS Safety Report 18650938 (Version 2)
Quarter: 2021Q1

REPORT INFORMATION
  Report Type: Spontaneous
  Country: US (occurrence: US)
  Receive Date: 20201223
  Receipt Date: 20210211
  Transmission Date: 20210419
  Serious: Yes (Hospitalization, Other)
  Sender: FDA-Public Use
  Company Number: US-JNJFOC-20201239159

PATIENT
  Age: 55 Year
  Sex: Female
  Weight: 136.51 kg

DRUGS (5)
  1. ADEMPAS [Suspect]
     Active Substance: RIOCIGUAT
     Indication: PULMONARY ARTERIAL HYPERTENSION
     Dosage: 2.5 MG, TID
     Route: 048
  2. RIVAROXABAN [Suspect]
     Active Substance: RIVAROXABAN
     Indication: DEEP VEIN THROMBOSIS
  3. ADEMPAS [Suspect]
     Active Substance: RIOCIGUAT
     Indication: PULMONARY ARTERIAL HYPERTENSION
     Dosage: UNK
     Route: 048
     Dates: start: 20200207
  4. ZINC CREAM [Concomitant]
  5. RIVAROXABAN [Suspect]
     Active Substance: RIVAROXABAN
     Indication: PULMONARY EMBOLISM
     Dosage: UNK
     Route: 048

REACTIONS (18)
  - Cellulitis [Unknown]
  - Dizziness [Not Recovered/Not Resolved]
  - Thrombosis [Unknown]
  - Breath sounds abnormal [Unknown]
  - Headache [Unknown]
  - Pruritus [Unknown]
  - Pain in extremity [Unknown]
  - Traumatic fracture [Unknown]
  - Arthralgia [Unknown]
  - Oedema peripheral [Unknown]
  - Musculoskeletal disorder [Unknown]
  - Joint injury [Unknown]
  - Fall [Unknown]
  - Skin lesion [Unknown]
  - Depression [Unknown]
  - Erythema [Unknown]
  - Head injury [Unknown]
  - Gait disturbance [Unknown]
